FAERS Safety Report 4755810-8 (Version None)
Quarter: 2005Q3

REPORT INFORMATION
  Report Type: 
  Country: None (occurrence: None)
  Receive Date: 20050829
  Receipt Date: 20050815
  Transmission Date: 20060218
  Serious: Yes (Other)
  Sender: FDA-Public Use
  Company Number: 2005117124

PATIENT
  Sex: Female

DRUGS (1)
  1. CALADRYL [Suspect]
     Dates: start: 20000101, end: 20000101

REACTIONS (3)
  - BLOOD PRESSURE DECREASED [None]
  - DRUG HYPERSENSITIVITY [None]
  - THROAT TIGHTNESS [None]
